FAERS Safety Report 16159149 (Version 1)
Quarter: 2019Q2

REPORT INFORMATION
  Report Type: Report from Study
  Country: ES (occurrence: ES)
  Receive Date: 20190404
  Receipt Date: 20190404
  Transmission Date: 20190711
  Serious: Yes (Life-Threatening)
  Sender: FDA-Public Use
  Company Number: PHHY2019ES064351

PATIENT
  Age: 50 Year
  Sex: Female
  Weight: 111 kg

DRUGS (2)
  1. MIDOSTAURIN [Suspect]
     Active Substance: MIDOSTAURIN
     Dosage: 50 MG, Q12H
     Route: 048
     Dates: start: 20190130
  2. MIDOSTAURIN [Suspect]
     Active Substance: MIDOSTAURIN
     Indication: LEUKAEMIA
     Dosage: 50 MG, Q12H
     Route: 048
     Dates: start: 20190117

REACTIONS (2)
  - Thrombocytopenia [Recovering/Resolving]
  - Neutropenia [Recovered/Resolved]

NARRATIVE: CASE EVENT DATE: 20190119
